FAERS Safety Report 13582014 (Version 5)
Quarter: 2017Q4

REPORT INFORMATION
  Report Type: Report from Study
  Country: IN (occurrence: IN)
  Receive Date: 20170525
  Receipt Date: 20171029
  Transmission Date: 20180320
  Serious: Yes (Death, Hospitalization, Disabling, Other)
  Sender: FDA-Public Use
  Company Number: PHHY2017IN072648

PATIENT
  Age: 58 Year
  Sex: Male
  Weight: 55 kg

DRUGS (5)
  1. REVOLADE [Suspect]
     Active Substance: ELTROMBOPAG
     Dosage: 50 MG, QOD
     Route: 048
     Dates: start: 20170708
  2. REVOLADE [Suspect]
     Active Substance: ELTROMBOPAG
     Dosage: 50 MG, QOD
     Route: 048
     Dates: start: 20170520, end: 20170605
  3. REVOLADE [Suspect]
     Active Substance: ELTROMBOPAG
     Indication: APLASTIC ANAEMIA
     Dosage: 50 MG, QD
     Route: 048
     Dates: start: 201610, end: 20170511
  4. REVOLADE [Suspect]
     Active Substance: ELTROMBOPAG
     Dosage: 50 MG, QD
     Route: 048
     Dates: start: 20170513
  5. REVOLADE [Suspect]
     Active Substance: ELTROMBOPAG
     Dosage: 50 MG, QD
     Route: 048
     Dates: start: 20170608, end: 20170627

REACTIONS (10)
  - Seizure [Recovered/Resolved]
  - Diarrhoea [Recovered/Resolved]
  - Cough [Unknown]
  - Death [Fatal]
  - Brain neoplasm [Unknown]
  - Hypokinesia [Recovering/Resolving]
  - Concomitant disease progression [Unknown]
  - Fungal infection [Unknown]
  - Seizure [Recovered/Resolved]
  - Weight decreased [Recovering/Resolving]

NARRATIVE: CASE EVENT DATE: 2016
